FAERS Safety Report 25464254 (Version 1)
Quarter: 2025Q2

REPORT INFORMATION
  Report Type: Spontaneous
  Country: US (occurrence: US)
  Receive Date: 20250621
  Receipt Date: 20250621
  Transmission Date: 20250717
  Serious: Yes (Other)
  Sender: AUROBINDO
  Company Number: US-MYLANLABS-2020M1034398

PATIENT
  Age: 50 Year
  Sex: Female

DRUGS (21)
  1. KETAMINE HYDROCHLORIDE [Interacting]
     Active Substance: KETAMINE HYDROCHLORIDE
     Indication: Complex regional pain syndrome
     Route: 042
  2. KETAMINE HYDROCHLORIDE [Interacting]
     Active Substance: KETAMINE HYDROCHLORIDE
     Route: 042
  3. KETAMINE HYDROCHLORIDE [Interacting]
     Active Substance: KETAMINE HYDROCHLORIDE
     Dosage: KETAMINE INFUSION...
     Route: 042
  4. KETAMINE HYDROCHLORIDE [Interacting]
     Active Substance: KETAMINE HYDROCHLORIDE
     Dosage: 10 MILLIGRAM, Q2H
     Route: 042
  5. KETAMINE HYDROCHLORIDE [Interacting]
     Active Substance: KETAMINE HYDROCHLORIDE
     Dosage: 40 MILLIGRAM, QH
     Route: 042
  6. BACLOFEN [Interacting]
     Active Substance: BACLOFEN
     Indication: Muscle spasms
     Route: 037
  7. DANTROLENE [Concomitant]
     Active Substance: DANTROLENE
     Indication: Product used for unknown indication
     Route: 065
  8. TIZANIDINE [Concomitant]
     Active Substance: TIZANIDINE
     Indication: Product used for unknown indication
     Route: 065
  9. TOPIRAMATE [Concomitant]
     Active Substance: TOPIRAMATE
     Indication: Product used for unknown indication
     Route: 065
  10. METOCLOPRAMIDE [Concomitant]
     Active Substance: METOCLOPRAMIDE
     Indication: Product used for unknown indication
     Route: 065
  11. ONDANSETRON [Concomitant]
     Active Substance: ONDANSETRON
     Indication: Product used for unknown indication
     Route: 065
  12. CLONIDINE [Concomitant]
     Active Substance: CLONIDINE
     Indication: Product used for unknown indication
     Route: 065
  13. LOSARTAN [Concomitant]
     Active Substance: LOSARTAN
     Indication: Product used for unknown indication
     Route: 065
  14. APIXABAN [Concomitant]
     Active Substance: APIXABAN
     Indication: Product used for unknown indication
     Route: 065
  15. RANITIDINE [Concomitant]
     Active Substance: RANITIDINE
     Indication: Product used for unknown indication
     Route: 065
  16. KETOROLAC [Concomitant]
     Active Substance: KETOROLAC TROMETHAMINE
     Indication: Product used for unknown indication
     Route: 065
  17. ROSUVASTATIN [Concomitant]
     Active Substance: ROSUVASTATIN
     Indication: Product used for unknown indication
     Route: 065
  18. MIDAZOLAM [Concomitant]
     Active Substance: MIDAZOLAM
     Indication: Premedication
     Route: 065
  19. PANTOPRAZOLE [Concomitant]
     Active Substance: PANTOPRAZOLE
     Indication: Premedication
     Route: 065
  20. GLYCOPYRROLATE                     /00196201/ [Concomitant]
     Indication: Premedication
     Route: 065
  21. DIPHENHYDRAMINE [Concomitant]
     Active Substance: DIPHENHYDRAMINE
     Indication: Premedication
     Route: 065

REACTIONS (3)
  - Inappropriate antidiuretic hormone secretion [Recovered/Resolved]
  - Drug interaction [Recovered/Resolved]
  - Sedation [Unknown]
